FAERS Safety Report 12451346 (Version 4)
Quarter: 2016Q4

REPORT INFORMATION
  Report Type: Report from Study
  Country: JP (occurrence: JP)
  Receive Date: 20160609
  Receipt Date: 20161110
  Transmission Date: 20170207
  Serious: Yes (Other)
  Sender: FDA-Public Use
  Company Number: JP-INCYTE CORPORATION-2016IN003312

PATIENT
  Sex: Male

DRUGS (2)
  1. JAKAVI [Suspect]
     Active Substance: RUXOLITINIB
     Dosage: 2.5 MG, BID
     Route: 048
     Dates: start: 20160802
  2. JAKAVI [Suspect]
     Active Substance: RUXOLITINIB
     Dosage: 2.5 MG, BID
     Route: 048
     Dates: start: 20160802

REACTIONS (4)
  - Anaemia [Recovering/Resolving]
  - Pyrexia [Recovering/Resolving]
  - Pneumonia [Recovered/Resolved]
  - Hepatic function abnormal [Recovering/Resolving]
